FAERS Safety Report 22200448 (Version 8)
Quarter: 2024Q1

REPORT INFORMATION
  Report Type: Report from Study
  Country: CA (occurrence: CA)
  Receive Date: 20230412
  Receipt Date: 20240313
  Transmission Date: 20240410
  Serious: Yes (Hospitalization, Other)
  Sender: FDA-Public Use
  Company Number: CA-UCBSA-2023018309

PATIENT
  Sex: Female

DRUGS (7)
  1. CERTOLIZUMAB PEGOL [Suspect]
     Active Substance: CERTOLIZUMAB PEGOL
     Indication: Rheumatoid arthritis
     Dosage: 400 MILLIGRAM, EV 2 WEEKS(QOW)
     Route: 058
     Dates: start: 20221207, end: 20230329
  2. CERTOLIZUMAB PEGOL [Suspect]
     Active Substance: CERTOLIZUMAB PEGOL
     Dosage: 200 MILLIGRAM, EV 2 WEEKS(QOW)
     Route: 058
     Dates: end: 20231220
  3. VITAMIN D3 [Concomitant]
     Active Substance: CHOLECALCIFEROL
     Indication: Product used for unknown indication
     Dosage: UNK
  4. IRON [Concomitant]
     Active Substance: IRON
     Indication: Product used for unknown indication
     Dosage: UNK
  5. VITAMIN C [Concomitant]
     Active Substance: ASCORBIC ACID
     Indication: Product used for unknown indication
     Dosage: UNK
  6. INTERFERON [Concomitant]
     Active Substance: INTERFERON
     Indication: Hepatitis C
  7. VITAMINS [Concomitant]
     Active Substance: VITAMINS
     Indication: Product used for unknown indication
     Dosage: UNK

REACTIONS (20)
  - Myocardial infarction [Unknown]
  - Arterial occlusive disease [Unknown]
  - Dyspnoea [Unknown]
  - Chest pain [Unknown]
  - Cellulite [Unknown]
  - Injection site infection [Recovering/Resolving]
  - Cataract [Unknown]
  - Cataract operation [Unknown]
  - Rheumatoid arthritis [Unknown]
  - Anaemia [Recovering/Resolving]
  - Transfusion [Unknown]
  - Oral surgery [Unknown]
  - Oral herpes [Recovering/Resolving]
  - Loose tooth [Unknown]
  - Injection site erythema [Unknown]
  - Diarrhoea [Recovered/Resolved]
  - Nausea [Recovered/Resolved]
  - Abdominal discomfort [Recovered/Resolved]
  - Product physical issue [Unknown]
  - Intentional dose omission [Unknown]

NARRATIVE: CASE EVENT DATE: 20230101
